FAERS Safety Report 7375868-X (Version None)
Quarter: 2011Q1

REPORT INFORMATION
  Report Type: 
  Country: None (occurrence: None)
  Receive Date: 20110325
  Receipt Date: 20110318
  Transmission Date: 20110831
  Serious: Yes (Other)
  Sender: FDA-Public Use
  Company Number: A0919707A

PATIENT
  Sex: Female

DRUGS (4)
  1. SERETIDE [Suspect]
     Route: 055
     Dates: start: 20110225
  2. METICORTEN [Concomitant]
     Route: 065
  3. VIRLIX [Concomitant]
  4. SINGULAIR [Concomitant]
     Route: 065

REACTIONS (6)
  - VISION BLURRED [None]
  - DRUG INEFFECTIVE [None]
  - VISUAL ACUITY REDUCED [None]
  - DRY MOUTH [None]
  - OVERDOSE [None]
  - NASAL DRYNESS [None]
